FAERS Safety Report 4710512-9 (Version None)
Quarter: 2005Q3

REPORT INFORMATION
  Report Type: 
  Country: None (occurrence: None)
  Receive Date: 20050711
  Receipt Date: 20050603
  Transmission Date: 20060218
  Serious: Yes (Other)
  Sender: FDA-Public Use
  Company Number: JP-ROCHE-406900

PATIENT
  Age: 83 Year
  Sex: Female

DRUGS (11)
  1. ROCEPHIN [Suspect]
     Route: 042
     Dates: start: 20050603, end: 20050603
  2. NOLVADEX [Concomitant]
     Route: 048
     Dates: start: 20050515
  3. MARZULENE [Concomitant]
     Route: 048
     Dates: start: 20050515
  4. MAGNESIUM OXIDE [Concomitant]
     Route: 048
     Dates: start: 20050515
  5. NORVASC [Concomitant]
     Route: 048
     Dates: start: 20050515
  6. NU-LOTAN [Concomitant]
     Route: 048
     Dates: start: 20050515
  7. SALOBEL [Concomitant]
     Route: 048
     Dates: start: 20050515
  8. KAYEXALATE [Concomitant]
     Route: 048
     Dates: start: 20050515
  9. GASMOTIN [Concomitant]
     Route: 048
     Dates: start: 20050515
  10. CEROCRAL [Concomitant]
     Route: 048
     Dates: start: 20050515
  11. LASIX [Concomitant]
     Route: 048
     Dates: start: 20050515

REACTIONS (1)
  - ANAPHYLACTIC SHOCK [None]
